FAERS Safety Report 6756623-8 (Version None)
Quarter: 2010Q2

REPORT INFORMATION
  Report Type: 
  Country: None (occurrence: None)
  Receive Date: 20100603
  Receipt Date: 20100603
  Transmission Date: 20101027
  Serious: Yes (Hospitalization)
  Sender: FDA-Public Use
  Company Number: None

PATIENT
  Age: 66 Year
  Sex: Male
  Weight: 156.9 kg

DRUGS (1)
  1. IMMUNE GLOBULIN NOS [Suspect]
     Indication: MYASTHENIA GRAVIS
     Dosage: 162 GM ONCE IV
     Route: 042
     Dates: start: 20100427, end: 20100427

REACTIONS (5)
  - ANAPHYLACTIC REACTION [None]
  - ANGIOEDEMA [None]
  - PRURITUS [None]
  - RESPIRATORY DISTRESS [None]
  - URTICARIA [None]
